FAERS Safety Report 12719964 (Version 2)
Quarter: 2016Q4

REPORT INFORMATION
  Report Type: Spontaneous
  Country: US (occurrence: US)
  Receive Date: 20160907
  Receipt Date: 20161108
  Transmission Date: 20170207
  Serious: Yes (Other)
  Sender: FDA-Public Use
  Company Number: US-JNJFOC-20150821247

PATIENT
  Sex: Female
  Weight: 85.28 kg

DRUGS (29)
  1. ACETAMINOPHEN. [Concomitant]
     Active Substance: ACETAMINOPHEN
     Indication: PAIN
     Route: 065
     Dates: start: 2006, end: 2007
  2. IBUPROFEN. [Concomitant]
     Active Substance: IBUPROFEN
     Indication: PAIN
     Route: 065
     Dates: start: 2006, end: 2014
  3. CHOLESTYRAMINE. [Concomitant]
     Active Substance: CHOLESTYRAMINE
     Indication: HYPERLIPIDAEMIA
     Route: 065
     Dates: start: 2006, end: 2007
  4. NAPROXEN. [Concomitant]
     Active Substance: NAPROXEN
     Indication: ANTIINFLAMMATORY THERAPY
     Route: 065
     Dates: start: 2011, end: 2012
  5. CYMBALTA [Concomitant]
     Active Substance: DULOXETINE HYDROCHLORIDE
     Indication: DEPRESSION
     Route: 065
     Dates: start: 2011, end: 2014
  6. AMOXICILLIN. [Concomitant]
     Active Substance: AMOXICILLIN
     Indication: PRODUCT USED FOR UNKNOWN INDICATION
     Route: 065
     Dates: start: 2006, end: 2014
  7. CIPROFLOXACIN. [Suspect]
     Active Substance: CIPROFLOXACIN
     Indication: PRODUCT USED FOR UNKNOWN INDICATION
     Dosage: 250 MG AND 500 MG PRESCRIBED IN INTERVALS BETWEEN 16-NOV-2009 TO 26-JUN-2013
     Route: 065
     Dates: start: 20091116, end: 20130921
  8. TRAMADOL. [Concomitant]
     Active Substance: TRAMADOL
     Indication: PAIN
     Route: 065
     Dates: start: 2011, end: 2014
  9. TRAMADOL. [Concomitant]
     Active Substance: TRAMADOL
     Indication: PAIN
     Route: 065
     Dates: start: 2006, end: 2007
  10. METOPROLOL. [Concomitant]
     Active Substance: METOPROLOL
     Indication: HYPERTENSION
     Route: 065
     Dates: start: 2011, end: 2015
  11. ESTRADIOL. [Concomitant]
     Active Substance: ESTRADIOL
     Indication: HORMONE THERAPY
     Route: 065
     Dates: start: 2008, end: 2015
  12. METRONIDAZOLE. [Concomitant]
     Active Substance: METRONIDAZOLE
     Indication: PRODUCT USED FOR UNKNOWN INDICATION
     Route: 065
     Dates: start: 20050818, end: 20140214
  13. LEVOFLOXACIN. [Suspect]
     Active Substance: LEVOFLOXACIN
     Indication: PRODUCT USED FOR UNKNOWN INDICATION
     Dosage: THE PATIENT WAS PRESCRIBED VARING DOSES OF 500 AND 750 MG IN INTERVAL FROM 29-NOV-2011TO 21-SEP-2012
     Route: 065
     Dates: start: 20111129, end: 20120921
  14. PREDNISONE. [Suspect]
     Active Substance: PREDNISONE
     Indication: PRODUCT USED FOR UNKNOWN INDICATION
     Route: 065
     Dates: start: 2006, end: 2013
  15. GABAPENTIN. [Concomitant]
     Active Substance: GABAPENTIN
     Indication: PAIN
     Route: 065
     Dates: start: 2010
  16. MELOXICAM. [Concomitant]
     Active Substance: MELOXICAM
     Indication: ANTIINFLAMMATORY THERAPY
     Route: 065
     Dates: start: 2012
  17. LEVAQUIN [Suspect]
     Active Substance: LEVOFLOXACIN
     Indication: PRODUCT USED FOR UNKNOWN INDICATION
     Dosage: THE PATIENT WAS PRESCRIBED VARING DOSES OF 500 AND 750 MG IN INTERVALS
     Route: 065
     Dates: start: 20040423, end: 20100622
  18. AVELOX [Suspect]
     Active Substance: MOXIFLOXACIN HYDROCHLORIDE
     Indication: PRODUCT USED FOR UNKNOWN INDICATION
     Dosage: THE PATIENT WAS PRESCRIBED 400 MG IN INTERVALS FROM 3-FEB-09 TO 1-JUL-2009
     Route: 065
     Dates: start: 20090203, end: 20090701
  19. LIPITOR [Concomitant]
     Active Substance: ATORVASTATIN CALCIUM
     Indication: HYPERLIPIDAEMIA
     Route: 065
     Dates: start: 2006, end: 2007
  20. WELCHOL [Concomitant]
     Active Substance: COLESEVELAM HYDROCHLORIDE
     Indication: HYPERLIPIDAEMIA
     Route: 065
     Dates: start: 2006, end: 2014
  21. DICLOFENAC [Concomitant]
     Active Substance: DICLOFENAC
     Indication: ANTIINFLAMMATORY THERAPY
     Route: 065
     Dates: start: 2007
  22. CYMBALTA [Concomitant]
     Active Substance: DULOXETINE HYDROCHLORIDE
     Indication: NEURALGIA
     Route: 065
     Dates: start: 2011, end: 2014
  23. MONTELUKAST [Concomitant]
     Active Substance: MONTELUKAST SODIUM
     Indication: ANTIINFLAMMATORY THERAPY
     Route: 065
     Dates: start: 2013, end: 2014
  24. AMITRIPTYLINE [Concomitant]
     Active Substance: AMITRIPTYLINE
     Indication: DEPRESSION
     Route: 065
     Dates: start: 2010, end: 2014
  25. CITALOPRAM [Concomitant]
     Active Substance: CITALOPRAM HYDROBROMIDE
     Indication: DEPRESSION
     Route: 065
     Dates: start: 2006, end: 2011
  26. ACETAMINOPHEN. [Concomitant]
     Active Substance: ACETAMINOPHEN
     Indication: PAIN
     Route: 065
     Dates: start: 2012
  27. CELEBREX [Concomitant]
     Active Substance: CELECOXIB
     Indication: ANTIINFLAMMATORY THERAPY
     Route: 065
     Dates: start: 2007, end: 2010
  28. NITROFURANTIN [Concomitant]
     Active Substance: NITROFURANTOIN
     Indication: PRODUCT USED FOR UNKNOWN INDICATION
     Route: 065
     Dates: start: 20050818, end: 20140214
  29. CIPROFLOXACIN. [Suspect]
     Active Substance: CIPROFLOXACIN
     Indication: PRODUCT USED FOR UNKNOWN INDICATION
     Dosage: THE PATIENT WAS PRESCRIBED 400 MG IN INTERVALS FROM 8-MAR-09 TO 26-JUN-2013
     Route: 065
     Dates: start: 2005

REACTIONS (2)
  - Neuropathy peripheral [Not Recovered/Not Resolved]
  - Peripheral sensory neuropathy [Not Recovered/Not Resolved]

NARRATIVE: CASE EVENT DATE: 2006
